FAERS Safety Report 7435751-8 (Version None)
Quarter: 2011Q2

REPORT INFORMATION
  Report Type: 
  Country: None (occurrence: None)
  Receive Date: 20110425
  Receipt Date: 20110415
  Transmission Date: 20111010
  Serious: No
  Sender: FDA-Public Use
  Company Number: US-CEPHALON-2011001907

PATIENT
  Sex: Male

DRUGS (2)
  1. HYDROCODONE [Concomitant]
  2. FENTORA [Suspect]
     Indication: PAIN
     Route: 002

REACTIONS (1)
  - DRUG PRESCRIBING ERROR [None]
